FAERS Safety Report 5764437-0 (Version None)
Quarter: 2008Q2

REPORT INFORMATION
  Report Type: 
  Country: None (occurrence: None)
  Receive Date: 20080610
  Receipt Date: 20080604
  Transmission Date: 20081010
  Serious: Yes (Hospitalization, Other)
  Sender: FDA-Public Use
  Company Number: GB-ALLERGAN-0806698US

PATIENT
  Sex: Female
  Weight: 64.5 kg

DRUGS (2)
  1. BOTOX [Suspect]
     Indication: HYPERTONIC BLADDER
     Dosage: 10 UNITS, UNK
     Route: 030
     Dates: start: 20060824, end: 20060824
  2. BLINDED BOTULINUM TOXIN TYPE A - GENERAL [Suspect]
     Indication: HYPERTONIC BLADDER
     Dosage: 10 UNITS, UNK
     Route: 030
     Dates: start: 20060824, end: 20060824

REACTIONS (2)
  - URINARY BLADDER HAEMORRHAGE [None]
  - VAGINAL DISCHARGE [None]
